FAERS Safety Report 8188946-2 (Version None)
Quarter: 2012Q1

REPORT INFORMATION
  Report Type: 
  Country: None (occurrence: None)
  Receive Date: 20120306
  Receipt Date: 20120301
  Transmission Date: 20120608
  Serious: Yes (Other)
  Sender: FDA-Public Use
  Company Number: US-AMGEN-USASP2011013294

PATIENT
  Age: 60 Year
  Sex: Female

DRUGS (11)
  1. VITAMIN D [Concomitant]
  2. B COMPLEX                          /00212701/ [Concomitant]
  3. METOPROLOL TARTRATE [Concomitant]
  4. PLAQUENIL [Concomitant]
  5. CLONIDINE [Concomitant]
  6. HYDRALAZINE HCL [Concomitant]
  7. LASIX [Concomitant]
  8. PREDNISONE TAB [Concomitant]
  9. MYCOPHENOLATE MOFETIL (CELLCEPT) [Concomitant]
  10. PROLIA [Suspect]
     Indication: OSTEOPOROSIS POSTMENOPAUSAL
     Dosage: 60 MG, Q6MO
     Dates: start: 20100101
  11. SYNTHROID [Concomitant]

REACTIONS (6)
  - ARTHRALGIA [None]
  - FEELING HOT [None]
  - JOINT SWELLING [None]
  - CYSTITIS [None]
  - BACK PAIN [None]
  - NEUROPATHY PERIPHERAL [None]
